FAERS Safety Report 16668253 (Version 4)
Quarter: 2019Q4

REPORT INFORMATION
  Report Type: Spontaneous
  Country: US (occurrence: US)
  Receive Date: 20190805
  Receipt Date: 20191108
  Transmission Date: 20200122
  Serious: No
  Sender: FDA-Public Use
  Company Number: US-PFIZER INC-2019335252

PATIENT
  Age: 70 Year
  Sex: Male
  Weight: 72.56 kg

DRUGS (8)
  1. ADVIL [Suspect]
     Active Substance: IBUPROFEN
     Indication: VARICOSE VEIN
  2. ADVIL [Suspect]
     Active Substance: IBUPROFEN
     Indication: ANTIINFLAMMATORY THERAPY
     Dosage: 200 MG, 1X/DAY
     Route: 048
     Dates: start: 20190617
  3. ADVIL [Suspect]
     Active Substance: IBUPROFEN
     Indication: INFLAMMATION
  4. ATORVASTATIN [Concomitant]
     Active Substance: ATORVASTATIN
     Indication: CARDIAC DISORDER
     Dosage: 80 MG, 1X/DAY
     Route: 048
     Dates: start: 20171014
  5. ADVIL LIQUI-GELS [Suspect]
     Active Substance: IBUPROFEN
     Indication: ANTIINFLAMMATORY THERAPY
     Dosage: 200 MG, 1X/DAY
  6. ADVIL [Suspect]
     Active Substance: IBUPROFEN
     Indication: TOOTHACHE
  7. ALEVE [Concomitant]
     Active Substance: NAPROXEN SODIUM
     Indication: DISCOMFORT
     Dosage: 2 DF, 2X/DAY
  8. ADVIL LIQUI-GELS [Suspect]
     Active Substance: IBUPROFEN
     Indication: VARICOSE VEIN
     Dosage: 200 MG, 2X/DAY
     Dates: start: 20190720

REACTIONS (4)
  - Incorrect product administration duration [Unknown]
  - Dyspepsia [Recovered/Resolved]
  - Intentional product use issue [Unknown]
  - Oropharyngeal discomfort [Not Recovered/Not Resolved]

NARRATIVE: CASE EVENT DATE: 20190617
